FAERS Safety Report 14769330 (Version 1)
Quarter: 2018Q2

REPORT INFORMATION
  Report Type: Spontaneous
  Country: US (occurrence: US)
  Receive Date: 20180417
  Receipt Date: 20180417
  Transmission Date: 20180711
  Serious: Yes (Life-Threatening, Hospitalization, Other)
  Sender: FDA-Public Use
  Company Number: US-WEST-WARD PHARMACEUTICALS CORP.-US-H14001-18-02761

PATIENT
  Age: 55 Year
  Sex: Male

DRUGS (12)
  1. DEXAMETHASONE. [Suspect]
     Active Substance: DEXAMETHASONE
     Indication: PLASMACYTOMA
     Route: 048
  2. VEPESID [Suspect]
     Active Substance: ETOPOSIDE
     Indication: PLASMA CELL MYELOMA
  3. LASIX [Concomitant]
     Active Substance: FUROSEMIDE
     Indication: CARDIAC FAILURE ACUTE
     Route: 042
  4. PLATINOL [Suspect]
     Active Substance: CISPLATIN
     Indication: PLASMA CELL MYELOMA
  5. CYTOXAN [Suspect]
     Active Substance: CYCLOPHOSPHAMIDE
     Indication: PLASMACYTOMA
     Route: 042
  6. PLATINOL [Suspect]
     Active Substance: CISPLATIN
     Indication: PLASMACYTOMA
     Route: 042
  7. ADRIAMYCIN [Suspect]
     Active Substance: DOXORUBICIN HYDROCHLORIDE
     Indication: PLASMA CELL MYELOMA
  8. VEPESID [Suspect]
     Active Substance: ETOPOSIDE
     Indication: PLASMACYTOMA
     Route: 042
  9. OXYGEN. [Concomitant]
     Active Substance: OXYGEN
     Indication: CARDIAC FAILURE ACUTE
     Route: 065
  10. ADRIAMYCIN [Suspect]
     Active Substance: DOXORUBICIN HYDROCHLORIDE
     Indication: PLASMACYTOMA
     Route: 042
  11. DEXAMETHASONE. [Suspect]
     Active Substance: DEXAMETHASONE
     Indication: PLASMA CELL MYELOMA
  12. CYTOXAN [Suspect]
     Active Substance: CYCLOPHOSPHAMIDE
     Indication: PLASMA CELL MYELOMA

REACTIONS (5)
  - Streptococcal bacteraemia [Unknown]
  - Alpha haemolytic streptococcal infection [Unknown]
  - Left ventricular dysfunction [Unknown]
  - Febrile neutropenia [Recovering/Resolving]
  - Cardiotoxicity [Unknown]
